FAERS Safety Report 9355512 (Version 12)
Quarter: 2019Q3

REPORT INFORMATION
  Report Type: Report from Study
  Country: US (occurrence: US)
  Receive Date: 20130619
  Receipt Date: 20190917
  Transmission Date: 20191005
  Serious: Yes (Other)
  Sender: FDA-Public Use
  Company Number: US-SANOFI-AVENTIS-2013SA055130

PATIENT
  Age: 55 Year
  Sex: Female
  Weight: 82.11 kg

DRUGS (20)
  1. TERIFLUNOMIDE. [Suspect]
     Active Substance: TERIFLUNOMIDE
     Dosage: 14 MG,QD
     Route: 048
     Dates: start: 20130605
  2. ESOMEPRAZOLE. [Concomitant]
     Active Substance: ESOMEPRAZOLE MAGNESIUM
     Dosage: 40 MG,QD
  3. CITALOPRAM HYDROBROMIDE. [Concomitant]
     Active Substance: CITALOPRAM HYDROBROMIDE
     Dosage: 20 MG,QD
  4. TOCOPHEROL [Concomitant]
     Active Substance: TOCOPHEROL
  5. TRAZODONE [Concomitant]
     Active Substance: TRAZODONE HYDROCHLORIDE
     Dosage: 50 MG,UNK
  6. EVISTA [Concomitant]
     Active Substance: RALOXIFENE HYDROCHLORIDE
     Dosage: 60 MG,QD
  7. SULFASALAZINE. [Concomitant]
     Active Substance: SULFASALAZINE
     Dosage: 500 MG,BID
  8. TERIFLUNOMIDE. [Suspect]
     Active Substance: TERIFLUNOMIDE
     Indication: MULTIPLE SCLEROSIS
     Dosage: 14 MG,QD
     Route: 048
     Dates: start: 20130526
  9. BACLOFEN. [Concomitant]
     Active Substance: BACLOFEN
     Dosage: 20 MG,TID
  10. COLACE [Concomitant]
     Active Substance: DOCUSATE SODIUM
  11. SYNTHROID [Concomitant]
     Active Substance: LEVOTHYROXINE SODIUM
     Dosage: 300 UG,QD
  12. TORASEMIDE [Concomitant]
     Active Substance: TORSEMIDE
  13. ULTRAM [Concomitant]
     Active Substance: TRAMADOL HYDROCHLORIDE
  14. ERGOCALCIFEROL. [Concomitant]
     Active Substance: ERGOCALCIFEROL
     Dosage: 1 MONTHLY
  15. ADDERALL [Concomitant]
     Active Substance: AMPHETAMINE ASPARTATE\AMPHETAMINE SULFATE\DEXTROAMPHETAMINE SACCHARATE\DEXTROAMPHETAMINE SULFATE
     Dosage: 30 MG,QD
  16. REBIF [Concomitant]
     Active Substance: INTERFERON BETA-1A
     Indication: MULTIPLE SCLEROSIS
     Dosage: UNK
     Dates: start: 20070701, end: 20130510
  17. TERIFLUNOMIDE. [Suspect]
     Active Substance: TERIFLUNOMIDE
     Dosage: 14 MG, QD
     Route: 048
     Dates: start: 20190117
  18. HYDROXYCHLOROQUINE PHOSPHATE [Concomitant]
     Active Substance: HYDROXYCHLOROQUINE DIPHOSPHATE
     Dosage: 200 MG,BID
  19. METHOTREXATE. [Concomitant]
     Active Substance: METHOTREXATE
     Dosage: UNK
  20. VITAMIN B [Concomitant]
     Active Substance: VITAMIN B

REACTIONS (27)
  - Arthralgia [Unknown]
  - Multiple sclerosis [Unknown]
  - Head discomfort [Recovered/Resolved]
  - Myalgia [Unknown]
  - Nasopharyngitis [Not Recovered/Not Resolved]
  - Joint swelling [Not Recovered/Not Resolved]
  - Bronchitis [Not Recovered/Not Resolved]
  - Abdominal distension [Unknown]
  - Ataxia [Recovering/Resolving]
  - Ear infection [Recovered/Resolved]
  - Weight increased [Unknown]
  - Neuropathy peripheral [Not Recovered/Not Resolved]
  - Hypoaesthesia [Unknown]
  - Fatigue [Recovered/Resolved]
  - Nasal congestion [Recovered/Resolved]
  - Peroneal nerve palsy [Unknown]
  - Muscular weakness [Recovered/Resolved]
  - Optic neuritis [Recovered/Resolved]
  - Multiple sclerosis relapse [Unknown]
  - Sinusitis [Not Recovered/Not Resolved]
  - Headache [Recovered/Resolved]
  - Pain [Not Recovered/Not Resolved]
  - Rheumatoid arthritis [Recovered/Resolved]
  - Antinuclear antibody positive [Unknown]
  - Memory impairment [Unknown]
  - Stress [Unknown]
  - Unevaluable event [Unknown]

NARRATIVE: CASE EVENT DATE: 20130527
